FAERS Safety Report 12631663 (Version 2)
Quarter: 2016Q3

REPORT INFORMATION
  Report Type: Spontaneous
  Country: US (occurrence: US)
  Receive Date: 20160808
  Receipt Date: 20160808
  Transmission Date: 20161109
  Serious: No
  Sender: FDA-Public Use
  Company Number: US-BEH-2015055242

PATIENT
  Sex: Female
  Weight: 44.9 kg

DRUGS (20)
  1. METFORMIN [Concomitant]
     Active Substance: METFORMIN HYDROCHLORIDE
  2. NYSTATIN. [Concomitant]
     Active Substance: NYSTATIN
  3. EPIPEN [Concomitant]
     Active Substance: EPINEPHRINE
  4. LIPITOR [Concomitant]
     Active Substance: ATORVASTATIN CALCIUM
  5. ACETAMINOPHEN. [Concomitant]
     Active Substance: ACETAMINOPHEN
  6. AUGMENTIN [Concomitant]
     Active Substance: AMOXICILLIN\CLAVULANATE POTASSIUM
  7. KLONOPIN [Concomitant]
     Active Substance: CLONAZEPAM
  8. MOTRIN [Concomitant]
     Active Substance: IBUPROFEN
  9. HIZENTRA [Suspect]
     Active Substance: HUMAN IMMUNOGLOBULIN G
     Indication: IMMUNODEFICIENCY COMMON VARIABLE
     Dosage: 2 GM VIALS
     Route: 058
  10. DIPHENHYDRAMINE. [Concomitant]
     Active Substance: DIPHENHYDRAMINE
  11. BACITRACIN. [Concomitant]
     Active Substance: BACITRACIN
  12. ATIVAN [Concomitant]
     Active Substance: LORAZEPAM
  13. MULTIVITAMIN [Concomitant]
     Active Substance: VITAMINS
  14. HIZENTRA [Suspect]
     Active Substance: HUMAN IMMUNOGLOBULIN G
     Dosage: 4 GM VIALS
     Route: 058
  15. ABILIFY [Concomitant]
     Active Substance: ARIPIPRAZOLE
  16. DIFLUCAN [Concomitant]
     Active Substance: FLUCONAZOLE
  17. CYMBALTA [Concomitant]
     Active Substance: DULOXETINE HYDROCHLORIDE
  18. LEVAQUIN [Concomitant]
     Active Substance: LEVOFLOXACIN
  19. OMEPRAZOLE. [Concomitant]
     Active Substance: OMEPRAZOLE
  20. LIDOCAINE/PRILOCAINE [Concomitant]
     Active Substance: LIDOCAINE\PRILOCAINE

REACTIONS (2)
  - Tooth infection [Recovered/Resolved]
  - Fatigue [Recovered/Resolved]
